FAERS Safety Report 14032461 (Version 1)
Quarter: 2017Q4

REPORT INFORMATION
  Report Type: Spontaneous
  Country: US (occurrence: US)
  Receive Date: 20171002
  Receipt Date: 20171002
  Transmission Date: 20180321
  Serious: No
  Sender: FDA-Public Use
  Company Number: US-GALDERMA-US17002799

PATIENT
  Age: 61 Year
  Sex: Female

DRUGS (1)
  1. METRONIDAZOLE TOPICAL GEL, 0.75% [Suspect]
     Active Substance: METRONIDAZOLE
     Indication: PRODUCT USED FOR UNKNOWN INDICATION
     Route: 061

REACTIONS (5)
  - Dry skin [Unknown]
  - Drug ineffective [Unknown]
  - Medication residue present [Unknown]
  - Erythema [Unknown]
  - Skin irritation [Unknown]
